FAERS Safety Report 14927750 (Version 2)
Quarter: 2018Q2

REPORT INFORMATION
  Report Type: Spontaneous
  Country: US (occurrence: US)
  Receive Date: 20180523
  Receipt Date: 20180524
  Transmission Date: 20180711
  Serious: No
  Sender: FDA-Public Use
  Company Number: US-PFIZER INC-2018207282

PATIENT
  Age: 62 Year
  Sex: Female
  Weight: 56.7 kg

DRUGS (2)
  1. LIOTHYRONINE SODIUM. [Suspect]
     Active Substance: LIOTHYRONINE SODIUM
     Indication: AUTOIMMUNE THYROIDITIS
     Dosage: 5 UG, 2X/DAY (TWO 5 UG TABLETS, SPACED 4-8 HOURS APART DAILY)
     Route: 048
     Dates: start: 201705
  2. LIOTHYRONINE SODIUM. [Suspect]
     Active Substance: LIOTHYRONINE SODIUM
     Indication: THYROID DISORDER
     Dosage: 5 UG, THREE TIMES A DAY

REACTIONS (3)
  - Fatigue [Recovered/Resolved]
  - Feeling abnormal [Unknown]
  - Product use issue [Unknown]

NARRATIVE: CASE EVENT DATE: 201705
